FAERS Safety Report 9294609 (Version 1)
Quarter: 2013Q2

REPORT INFORMATION
  Report Type: Spontaneous
  Country: US (occurrence: US)
  Receive Date: 20130517
  Receipt Date: 20130517
  Transmission Date: 20140414
  Serious: No
  Sender: FDA-Public Use
  Company Number: US-BIOGENIDEC-2013BI043511

PATIENT
  Sex: Female

DRUGS (1)
  1. AVONEX [Suspect]
     Indication: MULTIPLE SCLEROSIS
     Route: 030

REACTIONS (6)
  - Anti-interferon antibody positive [Unknown]
  - Influenza [Recovered/Resolved]
  - Scar [Not Recovered/Not Resolved]
  - Hypoglycaemia [Unknown]
  - Drug intolerance [Unknown]
  - Chills [Recovered/Resolved]
